FAERS Safety Report 6301292-4 (Version None)
Quarter: 2009Q3

REPORT INFORMATION
  Report Type: 
  Country: None (occurrence: None)
  Receive Date: 20090807
  Receipt Date: 20090729
  Transmission Date: 20100115
  Serious: Yes (Hospitalization, Other)
  Sender: FDA-Public Use
  Company Number: US-BAYER-200924964NA

PATIENT
  Age: 52 Year
  Sex: Male

DRUGS (2)
  1. NEXAVAR [Suspect]
     Indication: HEPATIC NEOPLASM MALIGNANT
     Dosage: TOTAL DAILY DOSE: 400 MG  UNIT DOSE: 200 MG
     Route: 048
     Dates: start: 20090501, end: 20090701
  2. LOTION [Concomitant]

REACTIONS (6)
  - BEDRIDDEN [None]
  - HAEMORRHAGE [None]
  - LISTLESS [None]
  - NAUSEA [None]
  - RASH [None]
  - WEIGHT DECREASED [None]
